FAERS Safety Report 20995847 (Version 2)
Quarter: 2023Q1

REPORT INFORMATION
  Report Type: Spontaneous
  Country: JP (occurrence: JP)
  Receive Date: 20220623
  Receipt Date: 20230213
  Transmission Date: 20230418
  Serious: Yes (Other)
  Sender: FDA-Public Use
  Company Number: JP-BRISTOL-MYERS SQUIBB COMPANY-2022-012225

PATIENT
  Age: 6 Decade
  Sex: Female

DRUGS (2)
  1. REVLIMID [Suspect]
     Active Substance: LENALIDOMIDE
     Indication: Follicular lymphoma
     Dosage: ONE TIME/DAY
     Route: 048
     Dates: start: 202111
  2. RITUXIMAB [Suspect]
     Active Substance: RITUXIMAB
     Indication: Follicular lymphoma
     Dates: start: 202111

REACTIONS (7)
  - Tumour flare [Recovering/Resolving]
  - Olfactory dysfunction [Not Recovered/Not Resolved]
  - Muscle spasms [Recovering/Resolving]
  - Neutropenia [Recovering/Resolving]
  - Pyrexia [Recovering/Resolving]
  - Sinusitis [Unknown]
  - Malignant neoplasm progression [Not Recovered/Not Resolved]
